FAERS Safety Report 6901586-5 (Version None)
Quarter: 2010Q3

REPORT INFORMATION
  Report Type: 
  Country: None (occurrence: None)
  Receive Date: 20100803
  Receipt Date: 20100729
  Transmission Date: 20110219
  Serious: Yes (Hospitalization, Other)
  Sender: FDA-Public Use
  Company Number: JP-JNJCH-2004037149

PATIENT
  Sex: Female

DRUGS (6)
  1. ZYRTEC [Suspect]
     Indication: NEURODERMATITIS
     Dosage: DAILY DOSE:10MG
     Route: 048
     Dates: start: 20021114, end: 20040409
  2. POTASSIUM CITRATE [Concomitant]
     Route: 048
     Dates: start: 20021114, end: 20040301
  3. HYDROXYZINE PAMOATE [Concomitant]
     Indication: NEURODERMATITIS
     Dosage: DAILY DOSE:50MG
     Route: 048
     Dates: start: 20021114, end: 20040409
  4. FLUDROXYCORTIDE [Concomitant]
     Route: 061
  5. CLOBETASOL PROPIONATE [Concomitant]
     Route: 061
  6. DICLOFENAC SODIUM [Concomitant]
     Route: 048
     Dates: start: 20040209, end: 20040215

REACTIONS (7)
  - EOSINOPHIL COUNT INCREASED [None]
  - EOSINOPHILIA [None]
  - HEPATIC FUNCTION ABNORMAL [None]
  - NASAL CONGESTION [None]
  - NASAL POLYPECTOMY [None]
  - PYREXIA [None]
  - WHITE BLOOD CELL COUNT ABNORMAL [None]
